FAERS Safety Report 11184344 (Version 1)
Quarter: 2015Q2

REPORT INFORMATION
  Report Type: Spontaneous
  Country: US (occurrence: None)
  Receive Date: 20150611
  Receipt Date: 20150611
  Transmission Date: 20150821
  Serious: Yes (Hospitalization)
  Sender: FDA-Public Use
  Company Number: None

PATIENT
  Age: 11 Year
  Sex: Female
  Weight: 45.5 kg

DRUGS (5)
  1. CYCLOPHOSPHAMIDE. [Suspect]
     Active Substance: CYCLOPHOSPHAMIDE
     Dates: end: 20150504
  2. MERCAPTOPURINE. [Suspect]
     Active Substance: MERCAPTOPURINE
     Dates: end: 20150517
  3. CYTARABINE. [Suspect]
     Active Substance: CYTARABINE
     Dates: end: 20150514
  4. ONCASPAR [Suspect]
     Active Substance: PEGASPARGASE
     Dates: end: 20150518
  5. VINCRISTINE SULFATE. [Suspect]
     Active Substance: VINCRISTINE SULFATE
     Dates: end: 20150527

REACTIONS (7)
  - Febrile neutropenia [None]
  - Hypokalaemia [None]
  - Decreased appetite [None]
  - Renal impairment [None]
  - Stenotrophomonas test positive [None]
  - Abdominal pain [None]
  - Diarrhoea [None]

NARRATIVE: CASE EVENT DATE: 20150601
